FAERS Safety Report 18338778 (Version 1)
Quarter: 2020Q4

REPORT INFORMATION
  Report Type: Spontaneous
  Country: DE (occurrence: DE)
  Receive Date: 20201002
  Receipt Date: 20201002
  Transmission Date: 20210113
  Serious: Yes (Hospitalization)
  Sender: FDA-Public Use
  Company Number: DE-MYLANLABS-2020M1082733

PATIENT
  Age: 78 Year
  Sex: Female

DRUGS (7)
  1. ACETYLSALICYLSAEURE [Concomitant]
     Active Substance: ASPIRIN
     Dosage: 100 MILLIGRAM, QD (100 MG, 0-1-0-0)
     Route: 048
  2. VERAPAMIL [Concomitant]
     Active Substance: VERAPAMIL HYDROCHLORIDE
     Dosage: 120 MILLIGRAM, BID (120 MG, 1-0-1-0)
     Route: 048
  3. METFORMIN [Concomitant]
     Active Substance: METFORMIN HYDROCHLORIDE
     Dosage: 1000 MILLIGRAM, BID (1000 MG, 1-0-1-0)
     Route: 048
  4. INSULIN LISPRO [Concomitant]
     Active Substance: INSULIN LISPRO
     Dosage: 1 INTERNATIONAL UNIT (1 IE, NACH WERT, AMPULLEN)
     Route: 058
  5. RAMIPRIL. [Concomitant]
     Active Substance: RAMIPRIL
     Dosage: 5 MILLIGRAM, BID (10 MG, 0.5-0-0.5-0)
     Route: 048
  6. LEVOTHYROXINE SODIUM. [Concomitant]
     Active Substance: LEVOTHYROXINE SODIUM
     Dosage: 0.15 MILLIGRAM, QD (0.15 MG, 0-0-0-1)
     Route: 048
  7. TRAMADOL. [Suspect]
     Active Substance: TRAMADOL
     Indication: PRODUCT USED FOR UNKNOWN INDICATION
     Dosage: NK ML, BEI BEDARF, TROPFEN
     Route: 048

REACTIONS (4)
  - Paresis [Unknown]
  - Headache [Unknown]
  - Aphasia [Unknown]
  - Thirst [Unknown]
